FAERS Safety Report 20084974 (Version 2)
Quarter: 2021Q4

REPORT INFORMATION
  Report Type: Spontaneous
  Country: PL (occurrence: PL)
  Receive Date: 20211118
  Receipt Date: 20211120
  Transmission Date: 20220303
  Serious: Yes (Death)
  Sender: FDA-Public Use
  Company Number: None

PATIENT

DRUGS (1)
  1. EYLEA [Suspect]
     Active Substance: AFLIBERCEPT
     Indication: Macular degeneration
     Dosage: DOSE: 2MG/0.05ML,
     Dates: start: 20211022, end: 20211022

REACTIONS (3)
  - Cardiac arrest [Fatal]
  - Dyspnoea [Fatal]
  - Hypertension [Fatal]

NARRATIVE: CASE EVENT DATE: 20211022
